FAERS Safety Report 21009683 (Version 1)
Quarter: 2022Q2

REPORT INFORMATION
  Report Type: Spontaneous
  Country: US (occurrence: None)
  Receive Date: 20220625
  Receipt Date: 20220625
  Transmission Date: 20220721
  Serious: No
  Sender: FDA-Public Use
  Company Number: None

PATIENT
  Age: 75 Year
  Sex: Female

DRUGS (1)
  1. AMBRISENTAN [Suspect]
     Active Substance: AMBRISENTAN
     Indication: Pulmonary arterial hypertension
     Dosage: 1MG DAILY ORAL?
     Route: 048
     Dates: start: 20210305

REACTIONS (2)
  - Productive cough [None]
  - Cough [None]

NARRATIVE: CASE EVENT DATE: 20220625
